FAERS Safety Report 9726616 (Version 1)
Quarter: 2013Q4

REPORT INFORMATION
  Report Type: Spontaneous
  Country: ID (occurrence: ID)
  Receive Date: 20131203
  Receipt Date: 20131203
  Transmission Date: 20140711
  Serious: Yes (Hospitalization)
  Sender: FDA-Public Use
  Company Number: ID-GLAXOSMITHKLINE-B0949736A

PATIENT
  Age: 11 Year
  Sex: Female

DRUGS (2)
  1. VENTOLIN [Suspect]
     Indication: ASTHMA
     Dosage: 1MGML PER DAY
     Route: 055
  2. SODIUM CHLORIDE [Suspect]
     Indication: ASTHMA
     Route: 055

REACTIONS (1)
  - Dyspnoea [Unknown]
